FAERS Safety Report 7402772-0 (Version None)
Quarter: 2011Q2

REPORT INFORMATION
  Report Type: 
  Country: None (occurrence: None)
  Receive Date: 20110408
  Receipt Date: 20110329
  Transmission Date: 20111010
  Serious: Yes (Other)
  Sender: FDA-Public Use
  Company Number: PHHY2011US07616

PATIENT
  Sex: Female

DRUGS (4)
  1. VITAMIN D [Concomitant]
     Dosage: 1 DF, WEEKLY
     Route: 048
     Dates: start: 20110303
  2. GILENYA [Suspect]
     Indication: MULTIPLE SCLEROSIS
     Dosage: 0.5 MG, QD
     Route: 048
     Dates: start: 20110119
  3. CYMBALTA [Concomitant]
     Dosage: 2 DF, DAILY
     Route: 048
     Dates: start: 20110103
  4. KLONOPIN [Concomitant]
     Indication: ANXIETY
     Dosage: 0.5 MG, UNK
     Route: 048

REACTIONS (3)
  - SINUSITIS [None]
  - UPPER RESPIRATORY TRACT INFECTION [None]
  - COUGH [None]
